FAERS Safety Report 23615026 (Version 1)
Quarter: 2024Q1

REPORT INFORMATION
  Report Type: Spontaneous
  Country: US (occurrence: US)
  Receive Date: 20240311
  Receipt Date: 20240311
  Transmission Date: 20240410
  Serious: No
  Sender: FDA-Public Use
  Company Number: US-JNJFOC-20240309816

PATIENT
  Age: 9 Year
  Sex: Male

DRUGS (3)
  1. RISPERDAL [Suspect]
     Active Substance: RISPERIDONE
     Indication: Behaviour disorder
     Dosage: VARYING DOSES OF 0.25 MG TWICE DAILY, 0.5 MG AT BED TIME
     Route: 048
  2. TENEX [Suspect]
     Active Substance: GUANFACINE HYDROCHLORIDE
     Indication: Behaviour disorder
     Dosage: IN VARYING FREQUENCIES OF ONCE DAILY AND TWICE DAILY
     Route: 048
  3. PROZAC [Suspect]
     Active Substance: FLUOXETINE HYDROCHLORIDE
     Indication: Anxiety disorder
     Route: 048

REACTIONS (3)
  - Somnolence [Unknown]
  - Weight increased [Unknown]
  - Increased appetite [Recovered/Resolved]

NARRATIVE: CASE EVENT DATE: 20130101
